FAERS Safety Report 8547306-2 (Version None)
Quarter: 2012Q3

REPORT INFORMATION
  Report Type: 
  Country: None (occurrence: None)
  Receive Date: 20120727
  Receipt Date: 20120315
  Transmission Date: 20120928
  Serious: No
  Sender: FDA-Public Use
  Company Number: US-ASTRAZENECA-2012SE18282

PATIENT
  Sex: Female
  Weight: 117.9 kg

DRUGS (8)
  1. HYDROXYCHLOROQUINE SULFATE [Concomitant]
     Indication: SYSTEMIC LUPUS ERYTHEMATOSUS
  2. SIMVASTATIN [Concomitant]
     Indication: BLOOD CHOLESTEROL ABNORMAL
  3. NAPROXEN [Concomitant]
     Indication: MUSCLE DISORDER
  4. NORCO [Concomitant]
     Indication: PAIN
  5. SEROQUEL [Suspect]
     Indication: BIPOLAR DISORDER
     Route: 048
  6. ZOLOFT [Concomitant]
     Indication: DEPRESSION
  7. SOMA [Concomitant]
     Indication: MUSCLE DISORDER
  8. XANAX [Concomitant]
     Indication: ANXIETY

REACTIONS (8)
  - DRUG WITHDRAWAL SYNDROME [None]
  - INSOMNIA [None]
  - DIZZINESS [None]
  - HEADACHE [None]
  - DIARRHOEA [None]
  - ANXIETY [None]
  - IRRITABILITY [None]
  - DRUG DOSE OMISSION [None]
